FAERS Safety Report 4302471-8 (Version None)
Quarter: 2004Q1

REPORT INFORMATION
  Report Type: 
  Country: None (occurrence: None)
  Receive Date: 20040218
  Receipt Date: 20031119
  Transmission Date: 20041129
  Serious: Yes (Other)
  Sender: FDA-Public Use
  Company Number: 200318428US

PATIENT
  Age: 40 Year
  Sex: Male
  Weight: 109.54 kg

DRUGS (8)
  1. LANTUS [Suspect]
     Indication: DIABETES MELLITUS INSULIN-DEPENDENT
     Dosage: 30 U HS
  2. LANTUS [Suspect]
     Indication: DIABETES MELLITUS INSULIN-DEPENDENT
     Dosage: 25 U HS
  3. INSULIN ASPART (NOVOLOG) SOLUTION FOR INJECTION [Suspect]
     Dosage: AC
  4. INSULIN [Concomitant]
  5. HUMALOG [Concomitant]
  6. GLIBENCLAMIDE (GLYNASE) [Concomitant]
  7. METFORMIN HYDROCHLORIDE [Concomitant]
  8. ASPIRIN [Concomitant]

REACTIONS (3)
  - FATIGUE [None]
  - HYPOGLYCAEMIA [None]
  - NEUROGLYCOPENIA [None]
